FAERS Safety Report 11867177 (Version 3)
Quarter: 2016Q3

REPORT INFORMATION
  Report Type: Spontaneous
  Country: US (occurrence: US)
  Receive Date: 20151224
  Receipt Date: 20160726
  Transmission Date: 20161109
  Serious: Yes (Disabling)
  Sender: FDA-Public Use
  Company Number: US-ASTRAZENECA-2012SE74485

PATIENT
  Age: 52 Year
  Sex: Female
  Weight: 79.4 kg

DRUGS (26)
  1. CLONIDINE. [Concomitant]
     Active Substance: CLONIDINE
     Dosage: 0.1MG UNKNOWN
     Dates: start: 1987
  2. ONGLYZA [Concomitant]
     Active Substance: SAXAGLIPTIN HYDROCHLORIDE
     Dosage: 2.5MG UNKNOWN
     Dates: start: 20121214
  3. CRESTOR [Suspect]
     Active Substance: ROSUVASTATIN CALCIUM
     Indication: BLOOD CHOLESTEROL INCREASED
     Dosage: 10.0MG UNKNOWN
     Route: 048
     Dates: start: 20090311
  4. NEXIUM [Concomitant]
     Active Substance: ESOMEPRAZOLE MAGNESIUM
     Indication: GASTRIC PH DECREASED
     Dosage: 40.0MG UNKNOWN
     Dates: start: 20070110
  5. GLYBURIDE/METFORMIN [Concomitant]
     Active Substance: GLYBURIDE\METFORMIN
     Dates: start: 1987
  6. PEXEVA [Concomitant]
     Active Substance: PAROXETINE MESYLATE
     Dosage: 20.0MG UNKNOWN
     Dates: start: 1987
  7. ACTOS [Concomitant]
     Active Substance: PIOGLITAZONE HYDROCHLORIDE
     Dates: start: 1987
  8. AVANDARYL [Concomitant]
     Active Substance: GLIMEPIRIDE\ROSIGLITAZONE MALEATE
     Dosage: 2- 4 MG
     Dates: start: 1987
  9. ALPRAZOLAM. [Concomitant]
     Active Substance: ALPRAZOLAM
     Dates: start: 1987
  10. DONEPEZIL. [Concomitant]
     Active Substance: DONEPEZIL
     Dates: start: 1987
  11. CRESTOR [Suspect]
     Active Substance: ROSUVASTATIN CALCIUM
     Indication: BLOOD CHOLESTEROL INCREASED
     Dosage: 5.0MG UNKNOWN
     Route: 048
     Dates: start: 20070302
  12. ATORVASTATIN [Concomitant]
     Active Substance: ATORVASTATIN
     Dates: start: 2013
  13. ACEBUTOLOL [Concomitant]
     Active Substance: ACEBUTOLOL
     Dosage: 200.0MG UNKNOWN
     Dates: start: 1987
  14. WELLBUTRIN [Concomitant]
     Active Substance: BUPROPION HYDROCHLORIDE
     Dates: start: 1987
  15. CYMBALTA [Concomitant]
     Active Substance: DULOXETINE HYDROCHLORIDE
     Dates: start: 1987
  16. ZOLPIDEM [Concomitant]
     Active Substance: ZOLPIDEM\ZOLPIDEM TARTRATE
     Dates: start: 1987
  17. TRAMADOL. [Concomitant]
     Active Substance: TRAMADOL
     Dosage: 50.0MG UNKNOWN
     Dates: start: 1987
  18. METFORMIN [Concomitant]
     Active Substance: METFORMIN HYDROCHLORIDE
     Dates: start: 1987
  19. GLIPIZIDE. [Concomitant]
     Active Substance: GLIPIZIDE
     Dosage: 10.0MG UNKNOWN
     Dates: start: 20070110
  20. MECLIZINE [Concomitant]
     Active Substance: MECLIZINE HYDROCHLORIDE
     Dates: start: 1987
  21. UNIRETIC [Concomitant]
     Active Substance: HYDROCHLOROTHIAZIDE\MOEXIPRIL HYDROCHLORIDE
     Dates: start: 1987
  22. CRESTOR [Suspect]
     Active Substance: ROSUVASTATIN CALCIUM
     Indication: BLOOD CHOLESTEROL INCREASED
     Route: 048
     Dates: start: 1987
  23. HUMALOG [Concomitant]
     Active Substance: INSULIN LISPRO
     Dates: start: 1987
  24. VITAMIN D [Concomitant]
     Active Substance: CHOLECALCIFEROL
     Dates: start: 1987
  25. DICLOFENAC [Concomitant]
     Active Substance: DICLOFENAC
     Dates: start: 1987
  26. AMLODIPINE [Concomitant]
     Active Substance: AMLODIPINE BESYLATE
     Dates: start: 1987

REACTIONS (4)
  - Hypertension [Not Recovered/Not Resolved]
  - Depression [Not Recovered/Not Resolved]
  - Diabetes mellitus [Not Recovered/Not Resolved]
  - Gastric pH decreased [Unknown]

NARRATIVE: CASE EVENT DATE: 2003
